FAERS Safety Report 18653123 (Version 1)
Quarter: 2020Q4

REPORT INFORMATION
  Report Type: Spontaneous
  Country: FR (occurrence: FR)
  Receive Date: 20201223
  Receipt Date: 20201223
  Transmission Date: 20210114
  Serious: Yes (Life-Threatening, Hospitalization)
  Sender: FDA-Public Use
  Company Number: FR-JNJFOC-20201234734

PATIENT
  Age: 64 Year
  Sex: Male
  Weight: 52 kg

DRUGS (24)
  1. HALDOL [Suspect]
     Active Substance: HALOPERIDOL
     Indication: HALLUCINATION
     Route: 048
     Dates: start: 20201010, end: 20201017
  2. PERINDOPRIL [Concomitant]
     Active Substance: PERINDOPRIL
  3. PANTOPRAZOLE [Concomitant]
     Active Substance: PANTOPRAZOLE
  4. POTASSIUM (CHLORURE DE) [Concomitant]
  5. PREDNISOLONE. [Concomitant]
     Active Substance: PREDNISOLONE
  6. PARACETAMOL [Concomitant]
     Active Substance: ACETAMINOPHEN
  7. CALCIUM (CARBONATE DE) [Concomitant]
     Active Substance: CALCIUM CARBONATE
  8. FUROSEMIDE. [Concomitant]
     Active Substance: FUROSEMIDE
  9. MYCOPHENOLATE MOFETIL. [Concomitant]
     Active Substance: MYCOPHENOLATE MOFETIL
  10. TEICOPLANINE [Concomitant]
     Active Substance: TEICOPLANIN
  11. NEFOPAM (CHLORHYDRATE DE) [Concomitant]
     Active Substance: NEFOPAM HYDROCHLORIDE
  12. LEVOFLOXACINE [Concomitant]
     Active Substance: LEVOFLOXACIN
  13. VALGANCICLOVIR. [Concomitant]
     Active Substance: VALGANCICLOVIR
  14. MORPHINE [Concomitant]
     Active Substance: MORPHINE
  15. URAPIDIL [Concomitant]
     Active Substance: URAPIDIL
  16. LEVOFLOXACINE ARROW [Interacting]
     Active Substance: LEVOFLOXACIN
     Indication: ANTIBIOTIC PROPHYLAXIS
     Route: 042
     Dates: start: 20201010, end: 20201017
  17. TAZOBACTAM [Concomitant]
     Active Substance: TAZOBACTAM
  18. TACROLIMUS MONOHYDRATE [Concomitant]
     Active Substance: TACROLIMUS
  19. INSULIN LISPRO [Concomitant]
     Active Substance: INSULIN LISPRO
  20. ENOXAPARINE SODIQUE [Concomitant]
     Active Substance: ENOXAPARIN SODIUM
  21. MIRTAZAPINE. [Concomitant]
     Active Substance: MIRTAZAPINE
  22. LOXAPINE (SUCCINATE DE) [Concomitant]
     Active Substance: LOXAPINE SUCCINATE
  23. PIPERACILLINE BASE [Concomitant]
     Active Substance: PIPERACILLIN SODIUM
  24. TERCIAN [Interacting]
     Active Substance: CYAMEMAZINE
     Indication: ANXIETY
     Route: 048
     Dates: start: 20201017, end: 20201021

REACTIONS (3)
  - Drug interaction [Unknown]
  - Status epilepticus [Recovered/Resolved]
  - Antibiotic level above therapeutic [Recovered/Resolved]

NARRATIVE: CASE EVENT DATE: 20201017
